FAERS Safety Report 6142231-9 (Version None)
Quarter: 2009Q2

REPORT INFORMATION
  Report Type: 
  Country: None (occurrence: None)
  Receive Date: 20090403
  Receipt Date: 20071129
  Transmission Date: 20091009
  Serious: Yes (Death, Other)
  Sender: FDA-Public Use
  Company Number: US-ASTRAZENECA-2007UW09487

PATIENT
  Age: 9963 Day
  Sex: Male

DRUGS (23)
  1. SEROQUEL [Suspect]
     Indication: BIPOLAR DISORDER
     Route: 048
     Dates: start: 19980401, end: 20030316
  2. SEROQUEL [Suspect]
     Indication: DEPRESSION
     Route: 048
     Dates: start: 19980401, end: 20030316
  3. SEROQUEL [Suspect]
     Indication: SCHIZOPHRENIA
     Route: 048
     Dates: start: 19980401, end: 20030316
  4. SEROQUEL [Suspect]
     Dosage: 100 TO 200 MG
     Route: 048
     Dates: start: 19980420
  5. SEROQUEL [Suspect]
     Dosage: 100 TO 200 MG
     Route: 048
     Dates: start: 19980420
  6. SEROQUEL [Suspect]
     Dosage: 100 TO 200 MG
     Route: 048
     Dates: start: 19980420
  7. TRIHEXYPHENIDYL [Concomitant]
  8. DIPHENHYDRAMINE [Concomitant]
  9. CLONAZEPAM [Concomitant]
  10. DEPAKOTE [Concomitant]
  11. LIPITOR [Concomitant]
  12. INSULIN HUMAN [Concomitant]
  13. ALLEGRA [Concomitant]
  14. BIAXIN [Concomitant]
  15. PEPCID [Concomitant]
  16. GLUCOTROL XL [Concomitant]
  17. CO-TUSSIN LIQUID [Concomitant]
  18. LEVAQUIN [Concomitant]
  19. LORTAB [Concomitant]
  20. NAVANE [Concomitant]
  21. AMOXICILLIN [Concomitant]
  22. TETRACYCLINE [Concomitant]
  23. ERYTHROMYCIN [Concomitant]

REACTIONS (3)
  - DIABETIC KETOACIDOSIS [None]
  - PANCREATITIS ACUTE [None]
  - TYPE 2 DIABETES MELLITUS [None]
